FAERS Safety Report 10714579 (Version 1)
Quarter: 2015Q1

REPORT INFORMATION
  Report Type: Other
  Country: US (occurrence: US)
  Receive Date: 20150115
  Receipt Date: 20150115
  Transmission Date: 20150721
  Serious: Yes (Hospitalization, Disabling)
  Sender: FDA-Public Use
  Company Number: US-ENDO PHARMACEUTICALS INC.-FORT20150006

PATIENT
  Age: 65 Year
  Sex: Male

DRUGS (1)
  1. FORTESTA [Suspect]
     Active Substance: TESTOSTERONE
     Indication: PRODUCT USED FOR UNKNOWN INDICATION
     Dosage: UNKNOWN
     Route: 061
     Dates: end: 201301

REACTIONS (2)
  - Cerebral venous thrombosis [Not Recovered/Not Resolved]
  - Myeloproliferative disorder [Not Recovered/Not Resolved]

NARRATIVE: CASE EVENT DATE: 20130201
